FAERS Safety Report 10192036 (Version 1)
Quarter: 2014Q2

REPORT INFORMATION
  Report Type: Spontaneous
  Country: GB (occurrence: GB)
  Receive Date: 20140523
  Receipt Date: 20140523
  Transmission Date: 20141212
  Serious: Yes (Other)
  Sender: FDA-Public Use
  Company Number: GB-PFIZER INC-2014138547

PATIENT
  Age: 23 Year
  Sex: Female
  Weight: 46 kg

DRUGS (7)
  1. MIRTAZAPINE [Suspect]
     Indication: JOINT HYPEREXTENSION
     Dosage: 30 MG, 1X/DAY
     Route: 048
     Dates: start: 20111028, end: 20140508
  2. MIRTAZAPINE [Suspect]
     Indication: HYPERMOBILITY SYNDROME
  3. PREGABALIN [Suspect]
     Indication: JOINT HYPEREXTENSION
     Dosage: 100 MG, 1X/DAY
     Route: 048
     Dates: start: 20111104, end: 20140508
  4. PREGABALIN [Suspect]
     Indication: HYPERMOBILITY SYNDROME
  5. NORTRIPTYLINE [Suspect]
     Indication: POOR QUALITY SLEEP
     Dosage: 30 MG, 1X/DAY, AT NIGHT.
     Route: 048
     Dates: start: 20121004
  6. DICLOFENAC [Concomitant]
     Dosage: UNK
  7. PARACETAMOL [Concomitant]
     Dosage: UNK

REACTIONS (1)
  - Abortion spontaneous [Unknown]
